FAERS Safety Report 10007862 (Version 3)
Quarter: 2015Q3

REPORT INFORMATION
  Report Type: Spontaneous
  Country: US (occurrence: US)
  Receive Date: 20140313
  Receipt Date: 20150814
  Transmission Date: 20151125
  Serious: No
  Sender: FDA-Public Use
  Company Number: US-GILEAD-2013-0069922

PATIENT
  Age: 56 Year
  Sex: Male

DRUGS (1)
  1. LETAIRIS [Suspect]
     Active Substance: AMBRISENTAN
     Indication: HIV INFECTION
     Dosage: 10 MG, UNK
     Route: 048
     Dates: start: 20090814

REACTIONS (1)
  - Dyspnoea [Unknown]
